FAERS Safety Report 7753476-6 (Version None)
Quarter: 2011Q3

REPORT INFORMATION
  Report Type: 
  Country: None (occurrence: None)
  Receive Date: 20110915
  Receipt Date: 20110906
  Transmission Date: 20111222
  Serious: Yes (Hospitalization)
  Sender: FDA-Public Use
  Company Number: JP-ASTRAZENECA-2011SE52619

PATIENT
  Age: 76 Year
  Sex: Male
  Weight: 63 kg

DRUGS (14)
  1. CANDESARTAN CILEXETIL [Suspect]
     Indication: HYPERTENSION
     Route: 048
     Dates: start: 20110408, end: 20110808
  2. LANIRAPID [Concomitant]
     Indication: CARDIAC FAILURE CHRONIC
     Route: 048
     Dates: start: 19991001, end: 20110804
  3. NEOPHAGEN C [Concomitant]
     Indication: ALCOHOLIC LIVER DISEASE
     Route: 048
     Dates: start: 20071122, end: 20110804
  4. AMLODIN OD [Concomitant]
     Indication: HYPERTENSION
     Route: 048
     Dates: start: 20110311
  5. TRICHLORMETHIAZIDE [Concomitant]
     Route: 048
  6. VERAPAMIL HCL [Concomitant]
     Indication: ARRHYTHMIA
     Route: 048
     Dates: start: 20000804, end: 20110804
  7. LASIX [Concomitant]
     Indication: CARDIAC FAILURE CHRONIC
     Route: 048
     Dates: start: 20100116, end: 20110804
  8. FRANDOL TAPE [Concomitant]
     Route: 062
  9. URSO 250 [Concomitant]
     Indication: ALCOHOLIC LIVER DISEASE
     Route: 048
     Dates: start: 20071122, end: 20110804
  10. LEVOTHYROXINE SODIUM [Concomitant]
     Indication: HYPOTHYROIDISM
     Route: 048
     Dates: start: 20100824
  11. GLYBURIDE [Concomitant]
     Indication: DIABETES MELLITUS
     Route: 048
     Dates: start: 19970101
  12. NESINA [Concomitant]
     Indication: DIABETES MELLITUS
     Route: 048
     Dates: start: 20110708
  13. ALDACTONE [Concomitant]
     Indication: CARDIAC FAILURE CHRONIC
     Route: 048
     Dates: start: 20100521
  14. ALDACTONE [Concomitant]
     Route: 048

REACTIONS (1)
  - RHABDOMYOLYSIS [None]
